FAERS Safety Report 8070778 (Version 7)
Quarter: 2012Q4

REPORT INFORMATION
  Report Type: 
  Country: DE (occurrence: FR)
  Receive Date: 20110805
  Receipt Date: 20121116
  Transmission Date: 20130627
  Serious: Yes (Other)
  Sender: FDA-Public Use
  Company Number: FR-BRISTOL-MYERS SQUIBB COMPANY-15940257

PATIENT
  Age: 68 Year
  Sex: Female
  Weight: 52 kg

DRUGS (10)
  1. ERBITUX SOLN FOR INF [Suspect]
     Indication: COLON CANCER
     Dosage: 250mg/m2 15Dec10,500mg/m2 28Dec,11Jan11,12+26Apr,10+24May,7+21Jun2011
     Route: 042
     Dates: start: 20101207, end: 20110621
  2. IRINOTECAN [Concomitant]
     Indication: COLON CANCER
     Dosage: 7+28Dec10,11Jan,12+26Apr,10+24May,7+21Jun11
     Route: 042
     Dates: start: 20101207, end: 20110621
  3. 5-FLUOROURACIL [Concomitant]
     Indication: COLON CANCER
     Dosage: 400mg/m2 7Dec,08,28Dec10,11-11Jan11,12-12,26-26Apr;10-10,24-24May,07+21Jun11,1200mg/m2 7,8,28Dec10
     Route: 042
     Dates: start: 20101207, end: 20110621
  4. ONDANSETRON [Concomitant]
     Indication: PREMEDICATION
     Dosage: 8mg 07+28Dec10,11Jan,12+26Apr,10+24May,7+21Jun11
     Route: 042
     Dates: start: 20101207, end: 20110621
  5. POLARAMINE [Concomitant]
     Dosage: 7,15+28Dec10,11Jan,12+26Apr,10+24May,7+21Jun11
     Route: 042
     Dates: start: 20101207, end: 20110621
  6. PRIMPERAN [Concomitant]
     Indication: PREMEDICATION
     Route: 042
     Dates: start: 20101208, end: 20101208
  7. METHYLPREDNISOLONE [Concomitant]
     Dosage: 120mg 7,+28Dec10,11Jan,12+26Apr,10+24May,7+21Jun11
     Route: 042
     Dates: start: 20101207, end: 20110621
  8. ATROPINE [Concomitant]
     Dates: start: 20101207, end: 20110621
  9. CALCIUM [Concomitant]
     Dosage: 7,+28Dec10,11Jan,12+26Apr,10+24May,7+21Jun11
     Route: 042
     Dates: start: 20101207, end: 20110621
  10. ZOPICLONE [Concomitant]
     Indication: DEPRESSION
     Route: 048

REACTIONS (3)
  - Blood immunoglobulin G increased [Recovering/Resolving]
  - Arthralgia [Recovering/Resolving]
  - Bone pain [Recovering/Resolving]
